FAERS Safety Report 6840367-8 (Version None)
Quarter: 2010Q3

REPORT INFORMATION
  Report Type: 
  Country: None (occurrence: None)
  Receive Date: 20100714
  Receipt Date: 20100709
  Transmission Date: 20110219
  Serious: Yes (Death, Hospitalization)
  Sender: FDA-Public Use
  Company Number: CN-BRISTOL-MYERS SQUIBB COMPANY-15115843

PATIENT
  Age: 56 Year
  Sex: Male
  Weight: 66 kg

DRUGS (6)
  1. CISPLATIN [Suspect]
     Indication: NON-SMALL CELL LUNG CANCER STAGE III
     Route: 042
     Dates: start: 20091214, end: 20100125
  2. ALIMTA [Suspect]
     Indication: NON-SMALL CELL LUNG CANCER STAGE III
     Dosage: 14DEC09-25JAN10(43 DAYS).22FEB10-ONGOING.LAST DOSE ON 19MAR10
     Route: 042
     Dates: start: 20091214
  3. RADIATION THERAPY [Suspect]
     Indication: NON-SMALL CELL LUNG CANCER STAGE III
     Dosage: 1 DF=60GY/30F,2 GY A WEEKDAILY FIVE TIMES.
     Dates: start: 20091214, end: 20100126
  4. FOLIC ACID [Concomitant]
     Dates: start: 20091207, end: 20100406
  5. VITAMIN B-12 [Concomitant]
     Dates: start: 20091207, end: 20100226
  6. DEXAMETHASONE ACETATE [Concomitant]
     Dates: start: 20091213, end: 20100316

REACTIONS (3)
  - HYPOXIA [None]
  - PNEUMONITIS [None]
  - RESPIRATORY FAILURE [None]
